FAERS Safety Report 10655662 (Version 1)
Quarter: 2014Q4

REPORT INFORMATION
  Report Type: Spontaneous
  Country: US (occurrence: None)
  Receive Date: 20141205
  Receipt Date: 20141205
  Transmission Date: 20150529
  Serious: Yes (Other)
  Sender: FDA-Public Use
  Company Number: USA-2014104151

PATIENT
  Age: 60 Year
  Sex: Female
  Weight: 66.7 kg

DRUGS (12)
  1. ACYCLOBIR [Concomitant]
  2. CALCIUM [Concomitant]
     Active Substance: CALCIUM
  3. AMOXICILLIN. [Concomitant]
     Active Substance: AMOXICILLIN
  4. BENZONATATE. [Concomitant]
     Active Substance: BENZONATATE
  5. LEVOTHYROXINE [Concomitant]
     Active Substance: LEVOTHYROXINE
  6. DEXAMETHASONE. [Concomitant]
     Active Substance: DEXAMETHASONE
  7. FLUOXETINE [Concomitant]
     Active Substance: FLUOXETINE\FLUOXETINE HYDROCHLORIDE
  8. HYDROCODONE ACETAMINOPHEN [Concomitant]
     Active Substance: ACETAMINOPHEN\HYDROCODONE BITARTRATE
  9. VITAMIN D [Concomitant]
     Active Substance: CHOLECALCIFEROL
  10. DULERA (FORMOTEROL FUMARATE, MOMETASONE FUROATE) [Concomitant]
  11. TYLENOL [Concomitant]
     Active Substance: ACETAMINOPHEN
  12. POMALYST [Suspect]
     Active Substance: POMALIDOMIDE
     Indication: PLASMA CELL MYELOMA
     Dosage: 21 IN 21 D, PO
     Route: 048
     Dates: start: 20140604

REACTIONS (2)
  - Furuncle [None]
  - Hypersensitivity [None]

NARRATIVE: CASE EVENT DATE: 2014
